FAERS Safety Report 18244425 (Version 5)
Quarter: 2022Q4

REPORT INFORMATION
  Report Type: Report from Study
  Country: CA (occurrence: CA)
  Receive Date: 20200908
  Receipt Date: 20221210
  Transmission Date: 20230112
  Serious: Yes (Death, Hospitalization, Other)
  Sender: FDA-Public Use
  Company Number: CA-ACTELION-A-CH2019-195707

PATIENT
  Age: 77 Year
  Sex: Male
  Weight: 90 kg

DRUGS (18)
  1. OPSUMIT [Suspect]
     Active Substance: MACITENTAN
     Indication: Pulmonary arterial hypertension
     Dosage: 10 MG, QD
     Route: 048
     Dates: start: 20190701, end: 20190709
  2. TRACLEER [Suspect]
     Active Substance: BOSENTAN
     Indication: Pulmonary arterial hypertension
     Dosage: 250 MG, QD
     Route: 048
     Dates: start: 20190904
  3. FUROSEMIDE [Suspect]
     Active Substance: FUROSEMIDE
     Indication: Pulmonary arterial hypertension
     Dosage: UNK
     Route: 048
     Dates: start: 2017
  4. FUROSEMIDE [Suspect]
     Active Substance: FUROSEMIDE
     Dosage: UNK
     Route: 042
  5. FUROSEMIDE [Suspect]
     Active Substance: FUROSEMIDE
     Dosage: UNK
     Route: 048
  6. FUROSEMIDE [Suspect]
     Active Substance: FUROSEMIDE
     Dosage: UNK
     Route: 042
  7. FUROSEMIDE [Suspect]
     Active Substance: FUROSEMIDE
     Dosage: 120 MG, BID
     Route: 042
  8. FUROSEMIDE [Suspect]
     Active Substance: FUROSEMIDE
     Dosage: 40 MG, BID
     Route: 048
  9. SILDENAFIL [Concomitant]
     Active Substance: SILDENAFIL
     Indication: Pulmonary arterial hypertension
     Dosage: 20 MG, QD
     Route: 048
     Dates: start: 201804
  10. LANSOPRAZOLE [Concomitant]
     Active Substance: LANSOPRAZOLE
     Indication: Gastrooesophageal reflux disease
     Dosage: UNK
     Route: 048
  11. WARFARIN [Concomitant]
     Active Substance: WARFARIN
     Indication: Pulmonary arterial hypertension
     Dosage: UNK
     Route: 048
     Dates: start: 2017, end: 20200421
  12. WARFARIN [Concomitant]
     Active Substance: WARFARIN
     Indication: Atrial fibrillation
  13. GLICLAZIDE [Concomitant]
     Active Substance: GLICLAZIDE
     Indication: Type 2 diabetes mellitus
     Dosage: UNK
     Route: 048
     Dates: start: 2004, end: 20200506
  14. METOPROLOL [Concomitant]
     Active Substance: METOPROLOL
     Indication: Pulmonary arterial hypertension
     Dosage: UNK
     Route: 048
     Dates: start: 2017
  15. CYANOCOBALAMIN [Concomitant]
     Active Substance: CYANOCOBALAMIN
     Indication: Vitamin B12
     Route: 030
  16. JANUVIA [Concomitant]
     Active Substance: SITAGLIPTIN PHOSPHATE
     Indication: Type 2 diabetes mellitus
     Dosage: UNK
     Route: 048
  17. BECLOMETHASONE DIPROPIONATE [Concomitant]
     Active Substance: BECLOMETHASONE DIPROPIONATE
     Indication: Respiratory disorder
  18. ELIQUIS [Concomitant]
     Active Substance: APIXABAN
     Indication: Anticoagulant therapy
     Route: 048

REACTIONS (41)
  - Death [Fatal]
  - Lower gastrointestinal haemorrhage [Recovered/Resolved]
  - Rectal haemorrhage [Recovered/Resolved]
  - Red blood cell transfusion [Recovered/Resolved]
  - Right ventricular failure [Recovered/Resolved]
  - Upper gastrointestinal haemorrhage [Recovered/Resolved]
  - Pulmonary arterial hypertension [Recovered/Resolved]
  - Cardiac failure congestive [Recovered/Resolved]
  - Peripheral swelling [Recovered/Resolved]
  - Hypervolaemia [Recovered/Resolved]
  - Fluid retention [Recovered/Resolved]
  - Polyuria [Recovering/Resolving]
  - Weight decreased [Unknown]
  - Dyspnoea [Unknown]
  - Gastrointestinal vascular malformation haemorrhagic [Recovered/Resolved]
  - Gastrointestinal haemorrhage [Recovered/Resolved]
  - Melaena [Recovered/Resolved]
  - Orthopnoea [Recovered/Resolved]
  - Weight increased [Recovered/Resolved]
  - Mineral supplementation [Recovered/Resolved]
  - Aspiration pleural cavity [Recovered/Resolved]
  - Anaemia [Unknown]
  - Tricuspid valve incompetence [Unknown]
  - Gastric varices [Unknown]
  - Portal hypertensive gastropathy [Unknown]
  - Femur fracture [Recovered/Resolved]
  - Pleural effusion [Recovered/Resolved]
  - Hepatic cirrhosis [Unknown]
  - Portal hypertension [Unknown]
  - Cough [Not Recovered/Not Resolved]
  - Asthenia [Unknown]
  - Gait disturbance [Unknown]
  - Right ventricular systolic pressure decreased [Unknown]
  - Right ventricular dilatation [Unknown]
  - Fatigue [Unknown]
  - Therapy non-responder [Not Recovered/Not Resolved]
  - Hypersomnia [Not Recovered/Not Resolved]
  - Incorrect dose administered [Unknown]
  - Urinary tract disorder [Unknown]
  - Haemorrhoidal haemorrhage [Unknown]
  - Epistaxis [Recovered/Resolved with Sequelae]

NARRATIVE: CASE EVENT DATE: 20190709
